FAERS Safety Report 7407661-3 (Version None)
Quarter: 2011Q2

REPORT INFORMATION
  Report Type: 
  Country: None (occurrence: None)
  Receive Date: 20110401
  Receipt Date: 20110321
  Transmission Date: 20111010
  Serious: Yes (Hospitalization)
  Sender: FDA-Public Use
  Company Number: DSJ-2011-05902

PATIENT
  Age: 80 Year
  Sex: Female

DRUGS (3)
  1. CHLORTHALIDONE (CHLORTHALIDONE) (CHLORTHALIDONE) [Concomitant]
  2. BENICAR [Suspect]
     Indication: HYPERTENSION
     Dosage: 40 MG (40 MG, 1 IN 1 D), PER ORAL, 20 MG (1 IN 1 D), PER ORAL
     Route: 048
     Dates: start: 20110201
  3. BENICAR [Suspect]
     Indication: HYPERTENSION
     Dosage: 40 MG (40 MG, 1 IN 1 D), PER ORAL, 20 MG (1 IN 1 D), PER ORAL
     Route: 048
     Dates: start: 20101201

REACTIONS (4)
  - ANGIOPLASTY [None]
  - DYSPNOEA [None]
  - OVERDOSE [None]
  - DRUG INEFFECTIVE [None]
